FAERS Safety Report 7784460-4 (Version None)
Quarter: 2011Q3

REPORT INFORMATION
  Report Type: 
  Country: None (occurrence: None)
  Receive Date: 20110928
  Receipt Date: 20110919
  Transmission Date: 20111222
  Serious: Yes (Hospitalization, Other)
  Sender: FDA-Public Use
  Company Number: US-BAYER-201035238NA

PATIENT
  Age: 38 Year
  Sex: Female
  Weight: 122.45 kg

DRUGS (2)
  1. TRIAMTERENE [Concomitant]
  2. YAZ [Suspect]
     Dosage: UNK
     Dates: start: 20080101

REACTIONS (2)
  - PULMONARY EMBOLISM [None]
  - THROMBOSIS [None]
